FAERS Safety Report 10372331 (Version 1)
Quarter: 2014Q3

REPORT INFORMATION
  Report Type: Spontaneous
  Country: US (occurrence: US)
  Receive Date: 20140808
  Receipt Date: 20140808
  Transmission Date: 20150326
  Serious: No
  Sender: FDA-Public Use
  Company Number: US-BRISTOL-MYERS SQUIBB COMPANY-20922860

PATIENT
  Sex: Female

DRUGS (1)
  1. SPRYCEL [Suspect]
     Active Substance: DASATINIB
     Indication: CHRONIC MYELOID LEUKAEMIA
     Dosage: DECREASED TO 70MG+50MG AND STOPPED IN JUNE 2013.?SEP 2013 100MG/DAY?CURRENT DOSE:100MG/DAY
     Dates: start: 2007

REACTIONS (1)
  - Nausea [Unknown]
